FAERS Safety Report 6698819-X (Version None)
Quarter: 2010Q2

REPORT INFORMATION
  Report Type: 
  Country: None (occurrence: None)
  Receive Date: 20100427
  Receipt Date: 20100422
  Transmission Date: 20101027
  Serious: Yes (Death, Hospitalization)
  Sender: FDA-Public Use
  Company Number: PHHY2010US22177

PATIENT
  Sex: Male

DRUGS (2)
  1. EXJADE [Suspect]
     Dosage: 500 MG, TID
     Route: 048
  2. CHEMOTHERAPEUTICS NOS [Suspect]
     Dosage: UNK

REACTIONS (5)
  - ILEUS [None]
  - LEUKAEMIA RECURRENT [None]
  - NEUTROPENIA [None]
  - NON-HODGKIN'S LYMPHOMA [None]
  - SEPSIS [None]
